FAERS Safety Report 6003210-5 (Version None)
Quarter: 2008Q4

REPORT INFORMATION
  Report Type: 
  Country: None (occurrence: None)
  Receive Date: 20081215
  Receipt Date: 20081215
  Transmission Date: 20090506
  Serious: Yes (Hospitalization)
  Sender: FDA-Public Use
  Company Number: None

PATIENT
  Sex: Male
  Weight: 89.8 kg

DRUGS (2)
  1. BUSULFAN [Suspect]
     Dosage: 287.2 MG
  2. CYCLOPHOSPHAMIDE [Suspect]
     Dosage: 17960 MG

REACTIONS (6)
  - CARDIO-RESPIRATORY ARREST [None]
  - DIFFUSE ALVEOLAR DAMAGE [None]
  - LUNG INFILTRATION [None]
  - PNEUMOTHORAX [None]
  - PROCEDURAL COMPLICATION [None]
  - PULMONARY ALVEOLAR HAEMORRHAGE [None]
